FAERS Safety Report 15229719 (Version 1)
Quarter: 2018Q3

REPORT INFORMATION
  Report Type: Spontaneous
  Country: US (occurrence: US)
  Receive Date: 20180802
  Receipt Date: 20180802
  Transmission Date: 20181010
  Serious: Yes (Hospitalization, Other)
  Sender: FDA-Public Use
  Company Number: US-ACCORD-061786

PATIENT
  Age: 77 Year
  Sex: Female
  Weight: 179 kg

DRUGS (21)
  1. PACLITAXEL. [Suspect]
     Active Substance: PACLITAXEL
     Indication: INVASIVE DUCTAL BREAST CARCINOMA
  2. ALPRAZOLAM. [Concomitant]
     Active Substance: ALPRAZOLAM
  3. ACETYLSALICYLIC ACID [Concomitant]
     Active Substance: ASPIRIN
     Route: 048
  4. POTASSIUM [Concomitant]
     Active Substance: POTASSIUM
     Dosage: DOSE: 10 MILLIEQUIVALENT
     Route: 048
  5. APREPITANT. [Concomitant]
     Active Substance: APREPITANT
     Dosage: EMEND 150MG IN 100 CC NS IV TO INFUSE OVER 35?45 MINS
     Route: 042
  6. METOPROLOL. [Concomitant]
     Active Substance: METOPROLOL
     Route: 048
  7. HEPARIN LOCK SYRINGE [Concomitant]
     Dosage: DOSE AND STRENGTH: 100UNIT/ML AND? ?SECOND DOSE :500UNIT/5 ML??ONE TIME DOSE
     Dates: start: 20120620
  8. PARACETAMOL [Concomitant]
     Active Substance: ACETAMINOPHEN
     Indication: PAIN
     Route: 048
  9. VITAMIN B COMPLEX NOS [Concomitant]
     Active Substance: CYANOCOBALAMIN\PYRIDOXINE HYDROCHLORIDE\RIBOFLAVIN\SODIUM PANTOTHENATE\THIAMINE HYDROCHLORIDE\VITAMIN B COMPLEX
     Route: 048
  10. DOCETAXEL ACCORD [Suspect]
     Active Substance: DOCETAXEL
     Indication: INVASIVE DUCTAL BREAST CARCINOMA
     Route: 042
     Dates: start: 20120619, end: 20120709
  11. DIPHENHYDRAMINE. [Concomitant]
     Active Substance: DIPHENHYDRAMINE
     Route: 048
  12. FLUTICASONE. [Concomitant]
     Active Substance: FLUTICASONE
     Indication: NASAL CONGESTION
     Dosage: ROA: INTRANASAL SPRAY
     Route: 045
  13. MITOXANTRONE [Suspect]
     Active Substance: MITOXANTRONE HYDROCHLORIDE
     Indication: INVASIVE DUCTAL BREAST CARCINOMA
  14. DEXAMETHASONE. [Concomitant]
     Active Substance: DEXAMETHASONE
     Dosage: DECADRON 20MG 50CC NS TO INFUSE OVER 15?30 MIN
  15. NEULASTA [Concomitant]
     Active Substance: PEGFILGRASTIM
     Dosage: 6 MG/0.6ML??ONE TIME DOSE
     Route: 058
     Dates: start: 20120620
  16. FISH OIL [Concomitant]
     Active Substance: FISH OIL
     Route: 048
  17. PEGFILGRASTIM [Concomitant]
     Active Substance: PEGFILGRASTIM
     Dosage: 6 MG SUBQ EVERY DAY 2
  18. CYCLOPHOSPHAMIDE. [Suspect]
     Active Substance: CYCLOPHOSPHAMIDE
     Indication: INVASIVE DUCTAL BREAST CARCINOMA
     Dosage: CYTOXAN 600MG/M2 IN 100 CC NS IV INFUSE OVER 45?60 MIN
     Route: 042
  19. GLICLAZIDE [Concomitant]
     Active Substance: GLICLAZIDE
     Route: 048
  20. LEVOTHYROXINE. [Concomitant]
     Active Substance: LEVOTHYROXINE
     Route: 048
  21. ALTEPLASE. [Concomitant]
     Active Substance: ALTEPLASE
     Dosage: 2MG/2ML ??ONE TIME DOSE
     Route: 042

REACTIONS (3)
  - Alopecia [Recovering/Resolving]
  - Pneumonia [Recovering/Resolving]
  - Neuropathy peripheral [Unknown]

NARRATIVE: CASE EVENT DATE: 20120816
